FAERS Safety Report 18881903 (Version 1)
Quarter: 2021Q1

REPORT INFORMATION
  Report Type: Report from Study
  Country: US (occurrence: US)
  Receive Date: 20210211
  Receipt Date: 20210211
  Transmission Date: 20210420
  Serious: Yes (Hospitalization)
  Sender: FDA-Public Use
  Company Number: US-GILEAD-2021-0516729

PATIENT
  Age: 21 Year
  Sex: Male

DRUGS (12)
  1. AZTREONAM LYSINE [Suspect]
     Active Substance: AZTREONAM LYSINE
     Indication: BRONCHIECTASIS
     Dosage: 75 MG, TID, FOR 28 DAYS ON, 28 DAYS OFF
     Route: 055
     Dates: start: 20200117
  2. DEPAKOTE [Concomitant]
     Active Substance: DIVALPROEX SODIUM
  3. RISPERIDONE. [Concomitant]
     Active Substance: RISPERIDONE
  4. BACLOFEN. [Concomitant]
     Active Substance: BACLOFEN
  5. KEPPRA [Concomitant]
     Active Substance: LEVETIRACETAM
  6. NEURONTIN [Concomitant]
     Active Substance: GABAPENTIN
  7. XOPENEX [Concomitant]
     Active Substance: LEVALBUTEROL HYDROCHLORIDE
  8. DILTIAZEM. [Concomitant]
     Active Substance: DILTIAZEM
  9. NYSTATIN. [Concomitant]
     Active Substance: NYSTATIN
  10. NEXIUM [Concomitant]
     Active Substance: ESOMEPRAZOLE MAGNESIUM
  11. MELATONIN [Concomitant]
     Active Substance: MELATONIN
  12. MUPIROCIN. [Concomitant]
     Active Substance: MUPIROCIN

REACTIONS (2)
  - Off label use [Unknown]
  - Infection [Recovered/Resolved]

NARRATIVE: CASE EVENT DATE: 20201208
